FAERS Safety Report 24243357 (Version 1)
Quarter: 2024Q3

REPORT INFORMATION
  Report Type: Spontaneous
  Country: NL (occurrence: NL)
  Receive Date: 20240823
  Receipt Date: 20240823
  Transmission Date: 20241017
  Serious: Yes (Other)
  Sender: MYLAN
  Company Number: NL-MYLANLABS-2024M1078111

PATIENT
  Sex: Female

DRUGS (4)
  1. LEVONORGESTREL [Suspect]
     Active Substance: LEVONORGESTREL
     Indication: Endometriosis
     Dosage: UNK, LEVONORGESTREL INTRAUTERINE DEVICE
     Route: 015
  2. DESOGESTREL [Suspect]
     Active Substance: DESOGESTREL
     Indication: Endometriosis
     Dosage: UNK
     Route: 065
  3. ACETAMINOPHEN [Suspect]
     Active Substance: ACETAMINOPHEN
     Indication: Endometriosis
     Dosage: UNK
     Route: 065
  4. ETONOGESTREL [Suspect]
     Active Substance: ETONOGESTREL
     Indication: Endometriosis
     Dosage: UNK
     Route: 058

REACTIONS (3)
  - Drug ineffective [Unknown]
  - Depression [Unknown]
  - Off label use [Unknown]
